FAERS Safety Report 8154971-0 (Version None)
Quarter: 2012Q1

REPORT INFORMATION
  Report Type: 
  Country: None (occurrence: None)
  Receive Date: 20120221
  Receipt Date: 20120217
  Transmission Date: 20120608
  Serious: Yes (Life-Threatening, Hospitalization, Other)
  Sender: FDA-Public Use
  Company Number: PHHY2011DE111641

PATIENT
  Sex: Female
  Weight: 87 kg

DRUGS (9)
  1. ASPIRIN W/CLOPIDOGREL [Concomitant]
     Indication: CORONARY ARTERY DISEASE
     Dosage: 1 DF, QD
     Route: 048
     Dates: start: 20080817
  2. DIOVAN HCT [Suspect]
     Indication: HYPERTENSION
     Dosage: 1 DF (VALS 160 MG, HYDR 12.5 MG), QD
     Route: 048
     Dates: start: 20050926
  3. AMLODIPINE [Concomitant]
     Indication: HYPERTENSION
     Dosage: 10 MG, QD
     Route: 048
     Dates: start: 20050926
  4. NSAID'S [Concomitant]
  5. LEVOTHYROXINE SODIUM [Concomitant]
     Indication: LOCAL SWELLING
     Dosage: 1 DF, QD
     Route: 048
     Dates: start: 20050926
  6. EZETIMIBE [Concomitant]
     Indication: HYPERCHOLESTEROLAEMIA
     Dosage: 10 MG, QD
     Route: 048
     Dates: start: 20050926
  7. ORAL ANTIDIABETICS [Concomitant]
     Indication: DIABETES MELLITUS
  8. METFORMIN HYDROCHLORIDE [Suspect]
     Indication: DIABETES MELLITUS
     Dosage: 1 DF, QD
     Route: 048
     Dates: start: 20110802
  9. SIMVASTATIN [Concomitant]
     Indication: HYPERCHOLESTEROLAEMIA
     Dosage: 10 MG, QD
     Route: 048

REACTIONS (4)
  - MYOCARDIAL INFARCTION [None]
  - CORONARY ARTERY RESTENOSIS [None]
  - OBESITY [None]
  - CORONARY ARTERY STENOSIS [None]
